FAERS Safety Report 25035572 (Version 2)
Quarter: 2025Q3

REPORT INFORMATION
  Report Type: Spontaneous
  Country: CN (occurrence: CN)
  Receive Date: 20250304
  Receipt Date: 20250809
  Transmission Date: 20251020
  Serious: Yes (Hospitalization, Other)
  Sender: ALEXION PHARMACEUTICALS
  Company Number: CN-ASTRAZENECA-202502CHN020619CN

PATIENT
  Age: 56 Year
  Sex: Female
  Weight: 42 kg

DRUGS (4)
  1. FASLODEX [Suspect]
     Active Substance: FULVESTRANT
     Indication: Neoplasm
     Dosage: 0.5 GRAM, QD
     Dates: start: 20250113, end: 20250113
  2. FASLODEX [Suspect]
     Active Substance: FULVESTRANT
  3. DENOSUMAB [Suspect]
     Active Substance: DENOSUMAB
     Indication: Neoplasm
     Dosage: 20 MILLIGRAM, QD
     Dates: start: 20250113, end: 20250113
  4. DALPICICLIB [Suspect]
     Active Substance: DALPICICLIB
     Indication: Neoplasm
     Dosage: 150 MILLIGRAM, QD
     Dates: start: 20250113, end: 20250113

REACTIONS (1)
  - Myelosuppression [Recovering/Resolving]
